FAERS Safety Report 22957408 (Version 2)
Quarter: 2023Q4

REPORT INFORMATION
  Report Type: Spontaneous
  Country: JP (occurrence: JP)
  Receive Date: 20230919
  Receipt Date: 20231005
  Transmission Date: 20240109
  Serious: Yes (Death, Hospitalization, Other)
  Sender: FDA-Public Use
  Company Number: JP-OTSUKA-2023_024398

PATIENT
  Age: 58 Year
  Sex: Female

DRUGS (4)
  1. BUSULFEX [Suspect]
     Active Substance: BUSULFAN
     Indication: Mismatched donor bone marrow transplantation therapy
     Dosage: UNK
     Route: 065
  2. BUSULFEX [Suspect]
     Active Substance: BUSULFAN
     Indication: Bone marrow conditioning regimen
  3. CYCLOPHOSPHAMIDE [Suspect]
     Active Substance: CYCLOPHOSPHAMIDE
     Indication: Mismatched donor bone marrow transplantation therapy
     Dosage: UNK
     Route: 065
  4. CYCLOPHOSPHAMIDE [Suspect]
     Active Substance: CYCLOPHOSPHAMIDE
     Indication: Bone marrow conditioning regimen

REACTIONS (9)
  - Hypogammaglobulinaemia [Unknown]
  - Pneumococcal infection [Fatal]
  - Disseminated intravascular coagulation [Unknown]
  - Septic rash [Unknown]
  - Septic shock [Unknown]
  - Metabolic acidosis [Unknown]
  - Pneumonia mycoplasmal [Unknown]
  - Pneumonia pneumococcal [Unknown]
  - Pneumocystis jirovecii pneumonia [Unknown]
